FAERS Safety Report 8929516 (Version 1)
Quarter: 2012Q4

REPORT INFORMATION
  Report Type: Spontaneous
  Country: US (occurrence: None)
  Receive Date: 20121120
  Receipt Date: 20121120
  Transmission Date: 20130627
  Serious: Yes (Other)
  Sender: FDA-Public Use
  Company Number: US-TORRENT-00000539

PATIENT
  Age: 32 Year
  Sex: Male

DRUGS (4)
  1. OLANZAPINE [Suspect]
     Indication: APPETITE DISORDER
     Dates: start: 20121031, end: 20121101
  2. DICYCLOMINE [Concomitant]
  3. PANTOPRAZOLE [Concomitant]
  4. AMITRIPTYLINE [Concomitant]

REACTIONS (4)
  - Neuropathy peripheral [None]
  - Hypersensitivity [None]
  - Neuralgia [None]
  - Product substitution issue [None]
